FAERS Safety Report 24742055 (Version 1)
Quarter: 2024Q4

REPORT INFORMATION
  Report Type: Report from Study
  Country: NL (occurrence: NL)
  Receive Date: 20241217
  Receipt Date: 20241217
  Transmission Date: 20250114
  Serious: Yes (Hospitalization)
  Sender: ABBVIE
  Company Number: NL-ABBVIE-6045828

PATIENT
  Age: 77 Year
  Sex: Male

DRUGS (9)
  1. CARBIDOPA\LEVODOPA [Suspect]
     Active Substance: CARBIDOPA\LEVODOPA
     Indication: Parkinson^s disease
     Route: 050
     Dates: start: 20230828
  2. CARBIDOPA\LEVODOPA [Suspect]
     Active Substance: CARBIDOPA\LEVODOPA
     Dosage: MORNING DOSAGE: 9.0 ML, CONTINUOUS DOSAGE: 1.9 ML/H, EXTRA DOSAGE: 1.50, THERAPY DURATION: REMAIN...
     Route: 050
     Dates: start: 20240715, end: 20240725
  3. CARBIDOPA\LEVODOPA [Suspect]
     Active Substance: CARBIDOPA\LEVODOPA
     Dosage: MORNING DOSAGE: 9.0 ML, CONTINUOUS DOSAGE: 1.8 ML/H, EXTRA DOSAGE: 1.50, THERAPY DURATION: REMAIN...
     Route: 050
     Dates: start: 20240725, end: 20240919
  4. CARBIDOPA\LEVODOPA [Suspect]
     Active Substance: CARBIDOPA\LEVODOPA
     Dosage: MORNING DOSAGE: 9.0 ML, CONTINUOUS DOSAGE: 1.8 ML/H, EXTRA DOSAGE: 1.50, THERAPY DURATION: REMAIN...
     Route: 050
     Dates: start: 20240919, end: 20241125
  5. CARBIDOPA\LEVODOPA [Suspect]
     Active Substance: CARBIDOPA\LEVODOPA
     Dosage: MORNING DOSAGE: 6.0 ML, CONTINUOUS DOSAGE: 1.9 ML/H, EXTRA DOSAGE: 1.50, THERAPY DURATION: REMAIN...
     Route: 050
     Dates: start: 20241125, end: 20241126
  6. CARBIDOPA\LEVODOPA [Suspect]
     Active Substance: CARBIDOPA\LEVODOPA
     Dosage: MORNING DOSAGE: 3.0 ML, CONTINUOUS DOSAGE: 1.9 ML/H, EXTRA DOSAGE: 1.50, THERAPY DURATION: REMAIN...
     Route: 050
     Dates: start: 20241126, end: 20241127
  7. CARBIDOPA\LEVODOPA [Suspect]
     Active Substance: CARBIDOPA\LEVODOPA
     Dosage: MORNING DOSAGE: 1.5ML, CONTINUOUS DOSAGE: 2.0 ML/H, EXTRA DOSAGE: 1.50, THERAPY DURATION: REMAINS...
     Route: 050
     Dates: start: 20241127, end: 20241204
  8. CARBIDOPA\LEVODOPA [Suspect]
     Active Substance: CARBIDOPA\LEVODOPA
     Dosage: MORNING DOSAGE: 9.0ML, CONTINUOUS DOSAGE: 2.0 ML/H, EXTRA DOSAGE: 1.50, THERAPY DURATION: REMAINS...
     Route: 050
     Dates: start: 20241204
  9. SYMMETREL [Concomitant]
     Active Substance: AMANTADINE HYDROCHLORIDE
     Indication: Parkinson^s disease
     Dosage: FREQUENCY: 1DD
     Route: 048

REACTIONS (17)
  - Rehabilitation therapy [Not Recovered/Not Resolved]
  - Dyskinesia [Recovered/Resolved]
  - Nausea [Not Recovered/Not Resolved]
  - Vomiting [Not Recovered/Not Resolved]
  - Dizziness [Not Recovered/Not Resolved]
  - Pallor [Not Recovered/Not Resolved]
  - Hypotension [Not Recovered/Not Resolved]
  - Hypokinesia [Not Recovered/Not Resolved]
  - Muscle rigidity [Not Recovered/Not Resolved]
  - Malaise [Not Recovered/Not Resolved]
  - Refusal of treatment by patient [Not Recovered/Not Resolved]
  - Tremor [Not Recovered/Not Resolved]
  - Depressed mood [Not Recovered/Not Resolved]
  - On and off phenomenon [Not Recovered/Not Resolved]
  - Stoma complication [Not Recovered/Not Resolved]
  - Loss of personal independence in daily activities [Unknown]
  - Device issue [Unknown]
